FAERS Safety Report 4414817-0 (Version None)
Quarter: 2004Q3

REPORT INFORMATION
  Report Type: 
  Country: None (occurrence: None)
  Receive Date: 20040804
  Receipt Date: 20031027
  Transmission Date: 20050211
  Serious: No
  Sender: FDA-Public Use
  Company Number: US-BRISTOL-MYERS SQUIBB COMPANY-12419941

PATIENT
  Age: 57 Year
  Sex: Female
  Weight: 83 kg

DRUGS (7)
  1. GLUCOVANCE [Suspect]
     Indication: DIABETES MELLITUS
     Dosage: DOSE CHANGED FROM 2.5/500 MG BID TO 5/500MG BID ON 10/27/03
     Route: 048
  2. CLONIDINE HCL [Concomitant]
  3. DARVON [Concomitant]
  4. CLARITIN [Concomitant]
  5. PAXIL [Concomitant]
  6. CLONAZEPAM [Concomitant]
  7. ACTRON [Concomitant]

REACTIONS (1)
  - DIZZINESS [None]
